FAERS Safety Report 25751587 (Version 1)
Quarter: 2025Q3

REPORT INFORMATION
  Report Type: Spontaneous
  Country: US (occurrence: None)
  Receive Date: 20250902
  Receipt Date: 20250902
  Transmission Date: 20251021
  Serious: No
  Sender: FDA-CTU
  Company Number: None

PATIENT
  Sex: Female

DRUGS (1)
  1. DASATINIB [Suspect]
     Active Substance: DASATINIB
     Indication: Cellulitis
     Dosage: FREQUENCY : DAILY;?
     Route: 048
     Dates: start: 20250218

REACTIONS (2)
  - Panic attack [None]
  - Alopecia [None]
